FAERS Safety Report 9459473 (Version 3)
Quarter: 2013Q4

REPORT INFORMATION
  Report Type: Report from Study
  Country: IT (occurrence: IT)
  Receive Date: 20130815
  Receipt Date: 20131010
  Transmission Date: 20140711
  Serious: Yes (Other)
  Sender: FDA-Public Use
  Company Number: IT-CELGENEUS-083-C5013-13080824

PATIENT
  Age: 59 Year
  Sex: Male
  Weight: 90 kg

DRUGS (7)
  1. CC-5013 [Suspect]
     Indication: CHRONIC LYMPHOCYTIC LEUKAEMIA
     Dosage: 2.5 MILLIGRAM
     Route: 048
     Dates: start: 20101108
  2. CC-5013 [Suspect]
     Route: 048
     Dates: start: 20130729, end: 20130807
  3. CC-5013 [Suspect]
     Route: 048
     Dates: end: 20130815
  4. ACETYLSALICYLIC ACID [Concomitant]
     Indication: THROMBOSIS PROPHYLAXIS
     Route: 065
     Dates: start: 20101108
  5. OMEPRAZOLE [Concomitant]
     Indication: PROPHYLAXIS
     Route: 065
     Dates: start: 20101108
  6. SOBREROLO [Concomitant]
     Indication: COUGH
     Route: 065
     Dates: start: 20111226
  7. ACETYLCYSTEINE [Concomitant]
     Indication: COUGH
     Route: 065
     Dates: start: 20120716

REACTIONS (1)
  - Malignant melanoma [Not Recovered/Not Resolved]
